FAERS Safety Report 23851943 (Version 2)
Quarter: 2024Q2

REPORT INFORMATION
  Report Type: Spontaneous
  Country: PT (occurrence: None)
  Receive Date: 20240514
  Receipt Date: 20240521
  Transmission Date: 20240716
  Serious: Yes (Other)
  Sender: FDA-Public Use
  Company Number: PT-ROCHE-3557435

PATIENT
  Age: 74 Year
  Sex: Male

DRUGS (9)
  1. BEVACIZUMAB [Suspect]
     Active Substance: BEVACIZUMAB
     Indication: Hepatocellular carcinoma
     Route: 065
     Dates: start: 20231013
  2. ATEZOLIZUMAB [Suspect]
     Active Substance: ATEZOLIZUMAB
     Indication: Hepatocellular carcinoma
     Route: 065
     Dates: start: 20231013
  3. ESOMEPRAZOLE [Concomitant]
     Active Substance: ESOMEPRAZOLE
  4. DULAGLUTIDE [Concomitant]
     Active Substance: DULAGLUTIDE
     Dosage: 1.5 MG/0.5ML, ONCE PER WEEK
  5. CARVEDILOL [Concomitant]
     Active Substance: CARVEDILOL
  6. ATORVASTATIN [Concomitant]
     Active Substance: ATORVASTATIN
     Dosage: 10 MG ID
  7. LANTUS [Concomitant]
     Active Substance: INSULIN GLARGINE
     Dosage: 40 U IN THE?MORNING
  8. CANDESARTAN CILEXETIL\HYDROCHLOROTHIAZIDE [Concomitant]
     Active Substance: CANDESARTAN CILEXETIL\HYDROCHLOROTHIAZIDE
     Dosage: 16/12.5 MG ID
  9. TAFLUPROST;TIMOLOL MALEATE [Concomitant]

REACTIONS (8)
  - Portal vein thrombosis [Unknown]
  - Mesenteric vein thrombosis [Unknown]
  - Asthenia [Unknown]
  - Decreased appetite [Unknown]
  - Cholestasis [Unknown]
  - Influenza [Unknown]
  - Epistaxis [Unknown]
  - Diarrhoea [Unknown]
